FAERS Safety Report 15294557 (Version 1)
Quarter: 2018Q3

REPORT INFORMATION
  Report Type: Not Available
  Country: CA (occurrence: CA)
  Receive Date: 20180820
  Receipt Date: 20180820
  Transmission Date: 20181010
  Serious: Yes (Other)
  Sender: FDA-Public Use
  Company Number: CA-CELGENEUS-CAN-20180803369

PATIENT
  Age: 80 Year
  Sex: Female

DRUGS (1)
  1. OTEZLA [Suspect]
     Active Substance: APREMILAST
     Indication: PSORIASIS
     Dosage: 60 MILLIGRAM
     Route: 048

REACTIONS (4)
  - Nail psoriasis [Unknown]
  - Condition aggravated [Unknown]
  - Psoriasis [Unknown]
  - Drug ineffective [Unknown]
